FAERS Safety Report 21192579 (Version 1)
Quarter: 2022Q3

REPORT INFORMATION
  Report Type: Spontaneous
  Country: BR (occurrence: BR)
  Receive Date: 20220809
  Receipt Date: 20220809
  Transmission Date: 20221027
  Serious: Yes (Death, Other)
  Sender: FDA-Public Use
  Company Number: BR-AMGEN-BRASP2022134259

PATIENT

DRUGS (1)
  1. PROLIA [Suspect]
     Active Substance: DENOSUMAB
     Indication: Osteoporosis
     Route: 065

REACTIONS (6)
  - Death [Fatal]
  - Spinal fracture [Unknown]
  - Hip fracture [Unknown]
  - Pelvic fracture [Unknown]
  - Radius fracture [Unknown]
  - Humerus fracture [Unknown]
